FAERS Safety Report 16336759 (Version 1)
Quarter: 2019Q2

REPORT INFORMATION
  Report Type: Report from Study
  Country: CA (occurrence: CA)
  Receive Date: 20190521
  Receipt Date: 20190521
  Transmission Date: 20190711
  Serious: Yes (Other)
  Sender: FDA-Public Use
  Company Number: CA-GLAXOSMITHKLINE-CA2019GSK089374

PATIENT
  Sex: Female

DRUGS (1)
  1. MEPOLIZUMAB [Suspect]
     Active Substance: MEPOLIZUMAB
     Indication: ASTHMA
     Dosage: 100 MG, Z, ONE MONTHLY
     Route: 042
     Dates: start: 20190417

REACTIONS (5)
  - Heart rate increased [Unknown]
  - Tremor [Unknown]
  - Loss of consciousness [Unknown]
  - Product dose omission [Unknown]
  - Malaise [Unknown]
